FAERS Safety Report 10866484 (Version 1)
Quarter: 2015Q1

REPORT INFORMATION
  Report Type: Spontaneous
  Country: US (occurrence: None)
  Receive Date: 20150220
  Receipt Date: 20150220
  Transmission Date: 20150721
  Serious: Yes (Other)
  Sender: FDA-Public Use
  Company Number: None

PATIENT
  Age: 84 Year
  Sex: Female
  Weight: 57.61 kg

DRUGS (7)
  1. CEPHALEXIN. [Concomitant]
     Active Substance: CEPHALEXIN
  2. CALCIUM [Concomitant]
     Active Substance: CALCIUM
  3. ASPIRIN. [Concomitant]
     Active Substance: ASPIRIN
  4. XARELTO [Suspect]
     Active Substance: RIVAROXABAN
     Indication: THROMBOPHLEBITIS SUPERFICIAL
     Dosage: 1 PILL
     Route: 048
  5. SIMVASTATIN. [Concomitant]
     Active Substance: SIMVASTATIN
  6. LOSARTAN [Concomitant]
     Active Substance: LOSARTAN
  7. 1 A DAY VITAMIN [Concomitant]
     Active Substance: VITAMINS

REACTIONS (1)
  - Blood urine present [None]

NARRATIVE: CASE EVENT DATE: 20150217
